FAERS Safety Report 9439809 (Version 1)
Quarter: 2013Q3

REPORT INFORMATION
  Report Type: Spontaneous
  Country: US (occurrence: US)
  Receive Date: 20130805
  Receipt Date: 20130805
  Transmission Date: 20140515
  Serious: No
  Sender: FDA-Public Use
  Company Number: US-PFIZER INC-2013225877

PATIENT
  Age: 62 Year
  Sex: Female

DRUGS (2)
  1. NEURONTIN [Suspect]
     Indication: NEUROPATHY PERIPHERAL
     Dosage: 1800 MG, 1X/DAY
     Dates: start: 2010, end: 201307
  2. NEURONTIN [Suspect]
     Dosage: 1200 MG, 1X/DAY
     Dates: start: 201307

REACTIONS (2)
  - Intentional drug misuse [Unknown]
  - Hypoaesthesia [Unknown]
